FAERS Safety Report 5761320-1 (Version None)
Quarter: 2008Q2

REPORT INFORMATION
  Report Type: 
  Country: None (occurrence: None)
  Receive Date: 20080604
  Receipt Date: 20080529
  Transmission Date: 20081010
  Serious: Yes (Death, Hospitalization)
  Sender: FDA-Public Use
  Company Number: APP200800473

PATIENT
  Age: 38 Year
  Sex: Female
  Weight: 54.4316 kg

DRUGS (13)
  1. HEPARIN SODIUM INJECTION [Suspect]
     Indication: HAEMODIALYSIS
     Dosage: 3 IN 1 WK
     Dates: start: 20060601
  2. PHOSLO [Concomitant]
  3. SODIUM BICARBONATE IN PLASTIC CONTAINER [Concomitant]
  4. LIPITOR [Concomitant]
  5. FUROSEMIDE [Concomitant]
  6. LANTUS [Concomitant]
  7. AVELOX [Concomitant]
  8. OXYCODONE HCL [Concomitant]
  9. LISINOPRIL (LISINOPIRL) [Concomitant]
  10. HUMALOG INSULIN (INSULIN LISPRO) [Concomitant]
  11. POTASSIUM (POTASSIUM) [Concomitant]
  12. KEFLEX [Concomitant]
  13. BUMEX [Concomitant]

REACTIONS (8)
  - BLOOD PRESSURE FLUCTUATION [None]
  - CEREBROVASCULAR DISORDER [None]
  - CONFUSIONAL STATE [None]
  - DIABETES MELLITUS [None]
  - DIABETIC KETOACIDOSIS [None]
  - HYPERHIDROSIS [None]
  - HYPOXIA [None]
  - RENAL FAILURE CHRONIC [None]
